FAERS Safety Report 7460536-6 (Version None)
Quarter: 2011Q2

REPORT INFORMATION
  Report Type: 
  Country: None (occurrence: None)
  Receive Date: 20110505
  Receipt Date: 20110504
  Transmission Date: 20111010
  Serious: Yes (Other)
  Sender: FDA-Public Use
  Company Number: GXKR2009DE09710

PATIENT
  Age: 80 Year
  Sex: Male

DRUGS (1)
  1. TRAMADOL [Suspect]
     Indication: INTERVERTEBRAL DISC PROTRUSION
     Dosage: 37.5 MG, BID
     Route: 048
     Dates: start: 20090401

REACTIONS (10)
  - SLEEP DISORDER [None]
  - HYPERHIDROSIS [None]
  - WITHDRAWAL SYNDROME [None]
  - BALANCE DISORDER [None]
  - ANXIETY [None]
  - APATHY [None]
  - VISUAL IMPAIRMENT [None]
  - HEADACHE [None]
  - DEPRESSION [None]
  - MUSCLE SPASMS [None]
